FAERS Safety Report 16300856 (Version 1)
Quarter: 2019Q2

REPORT INFORMATION
  Report Type: Spontaneous
  Country: IT (occurrence: IT)
  Receive Date: 20190510
  Receipt Date: 20190510
  Transmission Date: 20190711
  Serious: Yes (Other)
  Sender: FDA-Public Use
  Company Number: IT-PFIZER INC-2019197466

PATIENT
  Age: 61 Year
  Sex: Female
  Weight: 47 kg

DRUGS (8)
  1. PACLITAXEL ACCORD [Concomitant]
     Active Substance: PACLITAXEL
     Indication: OVARIAN CANCER
     Dosage: 250 MG, UNK
     Route: 042
     Dates: start: 20181211
  2. CHLORPHENAMINE [Concomitant]
     Active Substance: CHLORPHENIRAMINE MALEATE
     Dosage: 10 MG, UNK
     Route: 042
  3. DIBASE [Concomitant]
     Active Substance: CHOLECALCIFEROL
     Dosage: 25 GTT, UNK
     Route: 048
  4. AVASTIN [Concomitant]
     Active Substance: BEVACIZUMAB
     Indication: OVARIAN CANCER
     Dosage: 700 MG, UNK
     Route: 042
     Dates: start: 20181211
  5. ONDANSETRON HYDROCHLORIDE. [Concomitant]
     Active Substance: ONDANSETRON HYDROCHLORIDE
     Dosage: 8 MG, UNK
     Route: 042
  6. CARBOPLATIN. [Suspect]
     Active Substance: CARBOPLATIN
     Indication: OVARIAN CANCER
     Dosage: 400 MG, CYCLIC
     Route: 042
     Dates: start: 20181211, end: 20190124
  7. RANITIDINE. [Concomitant]
     Active Substance: RANITIDINE
     Dosage: 50 MG, UNK
     Route: 042
  8. DEXAMETHASONE. [Concomitant]
     Active Substance: DEXAMETHASONE
     Dosage: 20 MG, UNK
     Route: 042

REACTIONS (4)
  - Drug hypersensitivity [Recovered/Resolved]
  - Swollen tongue [Recovered/Resolved]
  - Dyspepsia [Recovered/Resolved]
  - Pharyngeal swelling [Recovered/Resolved]

NARRATIVE: CASE EVENT DATE: 20190124
